FAERS Safety Report 5762566-9 (Version None)
Quarter: 2008Q2

REPORT INFORMATION
  Report Type: 
  Country: None (occurrence: None)
  Receive Date: 20080609
  Receipt Date: 20080529
  Transmission Date: 20081010
  Serious: Yes (Death, Congenital Anomaly)
  Sender: FDA-Public Use
  Company Number: B0523148B

PATIENT

DRUGS (2)
  1. LAMICTAL [Suspect]
     Dosage: 400MG PER DAY
  2. URBANYL [Suspect]
     Dosage: 3UNIT PER DAY

REACTIONS (5)
  - DRUG EXPOSURE DURING PREGNANCY [None]
  - HEART DISEASE CONGENITAL [None]
  - PULMONARY ARTERY STENOSIS CONGENITAL [None]
  - RIGHT AORTIC ARCH [None]
  - VENTRICULAR SEPTAL DEFECT [None]
